FAERS Safety Report 24376704 (Version 1)
Quarter: 2024Q3

REPORT INFORMATION
  Report Type: Spontaneous
  Country: CN (occurrence: CN)
  Receive Date: 20240930
  Receipt Date: 20240930
  Transmission Date: 20241017
  Serious: Yes (Hospitalization)
  Sender: BEIGENE
  Company Number: CN-BEIGENE-BGN-2024-015017

PATIENT

DRUGS (6)
  1. TISLELIZUMAB [Suspect]
     Active Substance: TISLELIZUMAB
     Indication: Lung neoplasm malignant
     Dosage: 200 MILLIGRAM
     Route: 041
     Dates: start: 20240815
  2. PACLITAXEL [Suspect]
     Active Substance: PACLITAXEL
     Indication: Lung neoplasm malignant
     Dosage: 200 MILLIGRAM
     Route: 041
     Dates: start: 20240815
  3. PACLITAXEL [Suspect]
     Active Substance: PACLITAXEL
     Dosage: 200 MILLIGRAM
     Route: 041
     Dates: start: 20240822
  4. SODIUM CHLORIDE [Concomitant]
     Active Substance: SODIUM CHLORIDE
     Indication: Vehicle solution use
     Dosage: 40 MILLILITER
     Route: 041
     Dates: start: 20240815, end: 20240815
  5. SODIUM CHLORIDE [Concomitant]
     Active Substance: SODIUM CHLORIDE
     Dosage: 100 MILLILITER
     Route: 041
     Dates: start: 20240815, end: 20240815
  6. SODIUM CHLORIDE [Concomitant]
     Active Substance: SODIUM CHLORIDE
     Dosage: 100 MILLILITER
     Route: 041
     Dates: start: 20240822, end: 20240822

REACTIONS (2)
  - White blood cell count decreased [Recovering/Resolving]
  - Granulocyte count decreased [Recovering/Resolving]

NARRATIVE: CASE EVENT DATE: 20240904
